FAERS Safety Report 7161660-8 (Version None)
Quarter: 2010Q4

REPORT INFORMATION
  Report Type: 
  Country: None (occurrence: None)
  Receive Date: 20101215
  Receipt Date: 20101201
  Transmission Date: 20110411
  Serious: Yes (Other)
  Sender: FDA-Public Use
  Company Number: PHHY2010BR82224

PATIENT
  Sex: Female

DRUGS (1)
  1. AMLODIPINE BESYLATE AND VALSARTAN [Suspect]
     Indication: HYPERTENSION
     Dosage: 160/5 MG, ONE TABLET,  TWICE A DAY
     Route: 048

REACTIONS (3)
  - FALL [None]
  - HEAD INJURY [None]
  - LACERATION [None]
